FAERS Safety Report 5670324-9 (Version None)
Quarter: 2008Q2

REPORT INFORMATION
  Report Type: 
  Country: None (occurrence: None)
  Receive Date: 20080303
  Receipt Date: 20070702
  Transmission Date: 20081010
  Serious: Yes (Death)
  Sender: FDA-Public Use
  Company Number: MK-6035500

PATIENT
  Age: 6 Year
  Sex: Male

DRUGS (2)
  1. AMNESTEEM [Suspect]
     Dates: start: 20060401, end: 20060401
  2. AMNESTEEM [Suspect]
     Dates: start: 20060401, end: 20060401

REACTIONS (2)
  - DRUG INEFFECTIVE FOR UNAPPROVED INDICATION [None]
  - NEUROBLASTOMA [None]
